FAERS Safety Report 20807195 (Version 1)
Quarter: 2022Q2

REPORT INFORMATION
  Report Type: Spontaneous
  Country: RO (occurrence: RO)
  Receive Date: 20220510
  Receipt Date: 20220510
  Transmission Date: 20220721
  Serious: Yes (Other)
  Sender: FDA-Public Use
  Company Number: RO-ABBVIE-22K-135-4372713-00

PATIENT
  Age: 35 Year
  Sex: Female

DRUGS (11)
  1. ADALIMUMAB [Suspect]
     Active Substance: ADALIMUMAB
     Indication: Enterocolitis haemorrhagic
     Dosage: 40 MILLIGRAM
     Route: 058
     Dates: start: 2012, end: 2018
  2. ADALIMUMAB [Suspect]
     Active Substance: ADALIMUMAB
     Indication: Colitis ulcerative
  3. INFLIXIMAB [Concomitant]
     Active Substance: INFLIXIMAB
     Indication: Product used for unknown indication
     Dosage: 300 MILLIGRAM
     Route: 042
     Dates: start: 201105, end: 2012
  4. INFLIXIMAB [Concomitant]
     Active Substance: INFLIXIMAB
     Dosage: 300 MILLIGRAM, Q8WK
     Route: 042
     Dates: start: 2012, end: 2013
  5. IMURAN [Concomitant]
     Active Substance: AZATHIOPRINE
     Indication: Enterocolitis haemorrhagic
     Dosage: 50 MILLIGRAM
     Dates: start: 2009, end: 2011
  6. IMURAN [Concomitant]
     Active Substance: AZATHIOPRINE
     Indication: Colitis ulcerative
     Dosage: 50 MILLIGRAM
     Dates: start: 2012
  7. MESALAMINE [Concomitant]
     Active Substance: MESALAMINE
     Indication: Product used for unknown indication
     Dosage: 2 GRAM
     Route: 048
     Dates: start: 2005
  8. Salofalk [Concomitant]
     Indication: Colitis ulcerative
     Dosage: 4 GRAM
     Dates: start: 2011
  9. Salofalk [Concomitant]
     Indication: Enterocolitis haemorrhagic
     Dosage: 2 GRAM
     Dates: start: 2011
  10. Salofalk [Concomitant]
     Dosage: 1 GRAM
     Dates: start: 2012
  11. Salofalk [Concomitant]
     Dosage: 3 GRAM
     Dates: start: 2012

REACTIONS (12)
  - C-reactive protein increased [Recovered/Resolved]
  - Red blood cell sedimentation rate increased [Recovered/Resolved]
  - Colitis ulcerative [Recovered/Resolved]
  - Colitis ulcerative [Not Recovered/Not Resolved]
  - Blood iron decreased [Recovered/Resolved]
  - Colitis ulcerative [Recovered/Resolved]
  - Thrombocytosis [Recovered/Resolved]
  - Enterocolitis haemorrhagic [Recovered/Resolved]
  - Enterocolitis haemorrhagic [Recovered/Resolved]
  - Decreased appetite [Recovered/Resolved]
  - Leukocytosis [Recovered/Resolved]
  - Drug ineffective [Unknown]

NARRATIVE: CASE EVENT DATE: 20120101
